FAERS Safety Report 17566418 (Version 1)
Quarter: 2020Q1

REPORT INFORMATION
  Report Type: Spontaneous
  Country: DE (occurrence: DE)
  Receive Date: 20200320
  Receipt Date: 20200320
  Transmission Date: 20200409
  Serious: Yes (Death, Hospitalization)
  Sender: FDA-Public Use
  Company Number: DE-JNJFOC-20200318754

PATIENT
  Age: 74 Year
  Sex: Male

DRUGS (1)
  1. RIVAROXABAN [Suspect]
     Active Substance: RIVAROXABAN
     Indication: PULMONARY EMBOLISM
     Dosage: 20 MG, QD
     Route: 048
     Dates: start: 20160706

REACTIONS (6)
  - Metastases to skin [Fatal]
  - Metastases to pleura [Fatal]
  - Bladder transitional cell carcinoma [Fatal]
  - Metastases to peritoneum [Fatal]
  - Metastases to liver [Fatal]
  - Metastases to bone [Fatal]

NARRATIVE: CASE EVENT DATE: 20161123
